FAERS Safety Report 23936401 (Version 1)
Quarter: 2024Q2

REPORT INFORMATION
  Report Type: Spontaneous
  Country: IR (occurrence: IR)
  Receive Date: 20240604
  Receipt Date: 20240604
  Transmission Date: 20240716
  Serious: Yes (Death, Hospitalization)
  Sender: FDA-Public Use
  Company Number: IR-STRIDES ARCOLAB LIMITED-2024SP006354

PATIENT
  Age: 34 Year
  Sex: Male

DRUGS (1)
  1. TRAMADOL [Suspect]
     Active Substance: TRAMADOL\TRAMADOL HYDROCHLORIDE
     Indication: Product used for unknown indication
     Dosage: UNK
     Route: 065

REACTIONS (5)
  - Hypoxic-ischaemic encephalopathy [Fatal]
  - Accidental poisoning [Fatal]
  - Leukocytosis [Unknown]
  - Respiratory acidosis [Unknown]
  - Cardio-respiratory arrest [Unknown]
